FAERS Safety Report 19451425 (Version 1)
Quarter: 2021Q2

REPORT INFORMATION
  Report Type: Spontaneous
  Country: US (occurrence: US)
  Receive Date: 20210622
  Receipt Date: 20210622
  Transmission Date: 20210717
  Serious: Yes (Other)
  Sender: FDA-Public Use
  Company Number: None

PATIENT
  Age: 88 Year
  Sex: Female
  Weight: 81.65 kg

DRUGS (6)
  1. LOSARTAN\HCTZ [Concomitant]
     Active Substance: HYDROCHLOROTHIAZIDE\LOSARTAN
  2. VITAMIN B12 [Concomitant]
     Active Substance: CYANOCOBALAMIN
  3. VITAMIN D3 [Concomitant]
     Active Substance: CHOLECALCIFEROL
  4. CARBIDOPA/LEVO TABS 25/100 (GENERIC) FOR SINEMET [Suspect]
     Active Substance: CARBIDOPA\LEVODOPA
     Dosage: ?          OTHER STRENGTH:25/100;QUANTITY:1 DF DOSAGE FORM;?
     Route: 048
     Dates: start: 2020, end: 20210326
  5. CALCIUM [Concomitant]
     Active Substance: CALCIUM
  6. CBD [Concomitant]
     Active Substance: CANNABIDIOL

REACTIONS (4)
  - Nervous system disorder [None]
  - Pain [None]
  - Myalgia [None]
  - Musculoskeletal stiffness [None]
